FAERS Safety Report 13712779 (Version 2)
Quarter: 2017Q3

REPORT INFORMATION
  Report Type: Report from Study
  Country: DE (occurrence: DE)
  Receive Date: 20170703
  Receipt Date: 20170717
  Transmission Date: 20171127
  Serious: Yes (Hospitalization, Other)
  Sender: FDA-Public Use
  Company Number: DE-GILEAD-2017-0280889

PATIENT
  Age: 34 Year
  Sex: Male
  Weight: 66.5 kg

DRUGS (27)
  1. ISENTRESS [Concomitant]
     Active Substance: RALTEGRAVIR POTASSIUM
     Dosage: 400 MG, BID
     Route: 065
  2. PANTOZOL [Concomitant]
     Active Substance: PANTOPRAZOLE SODIUM
     Dosage: 40 MG, UNK
     Route: 065
  3. TAZOBAC [Concomitant]
     Active Substance: PIPERACILLIN SODIUM\TAZOBACTAM SODIUM
     Dosage: 4.5 G, TID
     Route: 065
  4. NEUPOGEN [Concomitant]
     Active Substance: FILGRASTIM
     Dosage: 30 MILLION IU, QD
     Route: 065
  5. CLEXANE [Concomitant]
     Active Substance: ENOXAPARIN SODIUM
     Dosage: 40 MG, UNK
     Route: 065
  6. RITUXIMAB. [Concomitant]
     Active Substance: RITUXIMAB
     Dosage: 705 MG, UNK
     Route: 065
  7. PREDNISONE. [Concomitant]
     Active Substance: PREDNISONE
     Dosage: 500 MG, UNK
     Route: 065
  8. EFAVIRENZ/EMTRICITABINE/TENOFOVIR DF [Suspect]
     Active Substance: EFAVIRENZ\EMTRICITABINE\TENOFOVIR DISOPROXIL FUMARATE
     Indication: HIV INFECTION
     Dosage: UNK
     Route: 065
     Dates: start: 2009
  9. CAPHOSOL [Concomitant]
     Active Substance: CALCIUM CHLORIDE\SODIUM CHLORIDE\SODIUM PHOSPHATE, DIBASIC, ANHYDROUS\SODIUM PHOSPHATE, MONOBASIC, ANHYDROUS
     Dosage: 5 TIMES A DAY
     Route: 065
  10. ZOFRAN [Concomitant]
     Active Substance: ONDANSETRON HYDROCHLORIDE
     Dosage: 8 MG, TID
     Route: 065
  11. DOXORUBICIN [Concomitant]
     Active Substance: DOXORUBICIN
     Dosage: 100 MG, UNK
     Route: 065
  12. CYCLOPHOSPHAMIDE. [Concomitant]
     Active Substance: CYCLOPHOSPHAMIDE
     Dosage: 1500 MG, UNK
     Route: 065
  13. EMTRICITABINE/TENOFOVIR DISOPROXIL FUMARATE [Suspect]
     Active Substance: EMTRICITABINE\TENOFOVIR DISOPROXIL FUMARATE
     Indication: HIV INFECTION
     Dosage: 245 MG, QD
     Route: 065
     Dates: start: 2009
  14. MCP [Concomitant]
     Active Substance: METOCLOPRAMIDE HYDROCHLORIDE
     Dosage: 10 MG, TID
     Route: 065
  15. ZYVOXID [Concomitant]
     Active Substance: LINEZOLID
     Dosage: 600 MG, BID
     Route: 065
  16. METHOTREXATE (METHOTREXATE SODIUM) [Concomitant]
     Active Substance: METHOTREXATE SODIUM
     Dosage: 2820 MG, UNK
     Route: 065
  17. CYTARABIN [Concomitant]
     Active Substance: CYTARABINE
     Dosage: 1128 MG, UNK
     Route: 065
  18. LEUKOVORIN [Concomitant]
     Active Substance: LEUCOVORIN SODIUM
     Dosage: 60 MG, UNK
     Route: 042
  19. AZICLOVIR [Concomitant]
     Dosage: 400 MG, BID
     Route: 065
  20. DEXAMETHASON                       /00016001/ [Concomitant]
     Active Substance: DEXAMETHASONE
     Dosage: 20 MG FOR 12 DAYS, UNK
     Route: 065
  21. VINCRISTIN [Concomitant]
     Active Substance: VINCRISTINE
     Dosage: 4 MG, UNK
     Route: 065
  22. MESNA. [Concomitant]
     Active Substance: MESNA
     Dosage: 3010 MG, UNK
     Route: 065
  23. COTRIM [Concomitant]
     Active Substance: SULFAMETHOXAZOLE\TRIMETHOPRIM
     Dosage: 960 MG, Q3WK
     Route: 065
  24. DIFLUCAN [Concomitant]
     Active Substance: FLUCONAZOLE
     Dosage: 400 MG, UNK
     Route: 065
  25. IFOSFAMIDA [Concomitant]
     Active Substance: IFOSFAMIDE
     Dosage: 7520 MG, UNK
     Route: 065
  26. SILIBININ [Concomitant]
     Active Substance: SILIBININ
     Dosage: 1400 MG, QD
     Route: 042
  27. ETOPOSID [Concomitant]
     Active Substance: ETOPOSIDE
     Dosage: 376 MG, UNK
     Route: 065

REACTIONS (4)
  - Acute hepatitis C [Unknown]
  - Burkitt^s lymphoma [Unknown]
  - Splenomegaly [Unknown]
  - Hepatic mass [Unknown]

NARRATIVE: CASE EVENT DATE: 201309
